FAERS Safety Report 10186304 (Version 1)
Quarter: 2014Q2

REPORT INFORMATION
  Report Type: Spontaneous
  Country: GB (occurrence: GB)
  Receive Date: 20140521
  Receipt Date: 20140521
  Transmission Date: 20141212
  Serious: Yes (Death)
  Sender: FDA-Public Use
  Company Number: GB-MYLANLABS-2014S1011931

PATIENT
  Sex: Male

DRUGS (1)
  1. CYSTAGON [Suspect]

REACTIONS (1)
  - Death [Fatal]
